FAERS Safety Report 17815644 (Version 1)
Quarter: 2020Q2

REPORT INFORMATION
  Report Type: Spontaneous
  Country: US (occurrence: US)
  Receive Date: 20200522
  Receipt Date: 20200522
  Transmission Date: 20200714
  Serious: No
  Sender: FDA-Public Use
  Company Number: US-BAUSCH-BL-2020-013935

PATIENT
  Sex: Male

DRUGS (1)
  1. MESALAMINE EXTENDED-RELEASE CAPSULES [Suspect]
     Active Substance: MESALAMINE
     Indication: PRODUCT USED FOR UNKNOWN INDICATION
     Route: 048

REACTIONS (2)
  - Product residue present [Not Recovered/Not Resolved]
  - Drug ineffective [Unknown]
